FAERS Safety Report 10533238 (Version 1)
Quarter: 2014Q4

REPORT INFORMATION
  Report Type: Spontaneous
  Country: US (occurrence: None)
  Receive Date: 20141021
  Receipt Date: 20141021
  Transmission Date: 20150529
  Serious: No
  Sender: FDA-Public Use
  Company Number: None

PATIENT
  Age: 61 Year
  Sex: Male
  Weight: 70.31 kg

DRUGS (1)
  1. PICATO [Suspect]
     Active Substance: INGENOL MEBUTATE
     Indication: ACTINIC KERATOSIS
     Dosage: 1 TUBE DAILY ONCE DAILY APPLIED TOA SURFACE, USUALLY THE SKIN
     Route: 048
     Dates: start: 20141018, end: 20141020

REACTIONS (4)
  - Product lot number issue [None]
  - Product packaging quantity issue [None]
  - Pain [None]
  - Unevaluable event [None]

NARRATIVE: CASE EVENT DATE: 20141020
